FAERS Safety Report 6665531-2 (Version None)
Quarter: 2010Q2

REPORT INFORMATION
  Report Type: 
  Country: None (occurrence: None)
  Receive Date: 20100402
  Receipt Date: 20100326
  Transmission Date: 20101027
  Serious: Yes (Other)
  Sender: FDA-Public Use
  Company Number: CA-ASTRAZENECA-2010SE09950

PATIENT
  Age: 28281 Day
  Sex: Female

DRUGS (1)
  1. FASLODEX [Suspect]
     Indication: NEOPLASM MALIGNANT
     Dosage: 1 DOSAGE UNIT PER MONTH ,5 ML DAILY
     Route: 030
     Dates: start: 20091216, end: 20100305

REACTIONS (2)
  - DRUG DOSE OMISSION [None]
  - METASTASIS [None]
